FAERS Safety Report 19624250 (Version 1)
Quarter: 2021Q3

REPORT INFORMATION
  Report Type: Spontaneous
  Country: US (occurrence: US)
  Receive Date: 20210728
  Receipt Date: 20210728
  Transmission Date: 20211014
  Serious: Yes (Other)
  Sender: FDA-Public Use
  Company Number: US-SA-2021SA245238

PATIENT
  Age: 69 Year
  Sex: Male

DRUGS (2)
  1. ZANTAC [Suspect]
     Active Substance: RANITIDINE HYDROCHLORIDE
     Indication: DYSPEPSIA
     Dosage: 150 MG, QD
     Dates: start: 200001, end: 201601
  2. ZANTAC [Suspect]
     Active Substance: RANITIDINE HYDROCHLORIDE
     Indication: HYPERCHLORHYDRIA

REACTIONS (18)
  - Gastric cancer [Unknown]
  - Gastrointestinal carcinoma [Unknown]
  - Hepatic cancer [Unknown]
  - Uterine cancer [Unknown]
  - Cervix carcinoma [Unknown]
  - Renal cancer [Unknown]
  - Skin cancer [Unknown]
  - Colorectal cancer [Unknown]
  - Testis cancer [Unknown]
  - Ovarian cancer [Unknown]
  - Haematological malignancy [Unknown]
  - Gallbladder cancer [Unknown]
  - Pancreatic carcinoma [Unknown]
  - Prostate cancer [Unknown]
  - Oesophageal carcinoma [Unknown]
  - Small intestine carcinoma [Unknown]
  - Bladder cancer [Unknown]
  - Appendix cancer [Unknown]

NARRATIVE: CASE EVENT DATE: 20150101
